FAERS Safety Report 9694180 (Version 2)
Quarter: 2013Q4

REPORT INFORMATION
  Report Type: Spontaneous
  Country: US (occurrence: US)
  Receive Date: 20131118
  Receipt Date: 20131118
  Transmission Date: 20140711
  Serious: Yes (Other)
  Sender: FDA-Public Use
  Company Number: US-ACTAVIS-2013-16898

PATIENT
  Sex: 0

DRUGS (12)
  1. FENTANYL-100 (WATSON LABORATORIES) [Suspect]
     Indication: PAIN
     Dosage: ONE PATCH Q48H
     Route: 062
  2. FENTANYL-100 (WATSON LABORATORIES) [Suspect]
     Dosage: ONE PATCH Q48H
     Route: 062
  3. FENTANYL-100 (WATSON LABORATORIES) [Suspect]
     Dosage: ONE PATCH Q48H
     Route: 062
     Dates: start: 20131015
  4. CARDIZEM                           /00489701/ [Concomitant]
     Indication: HYPERTENSION
     Dosage: 240 MG, DAILY
     Route: 048
     Dates: start: 2005
  5. BENICAR [Concomitant]
     Indication: HYPERTENSION
     Dosage: 20 MG, DAILY
     Route: 048
     Dates: start: 2012
  6. CYMBALTA [Concomitant]
     Indication: FIBROMYALGIA
     Dosage: 2 MG, DAILY
     Route: 048
     Dates: start: 2011
  7. ZETIA [Concomitant]
     Indication: HYPERLIPIDAEMIA
     Dosage: 10 MG, DAILY
     Route: 048
     Dates: start: 2009
  8. HYDROCODONE HYDROCHLORIDE W/PARACETAMOL [Concomitant]
     Indication: BREAKTHROUGH PAIN
     Dosage: 10/325 MG AS NEEDED
     Route: 048
     Dates: start: 201207
  9. SIMPONI [Concomitant]
     Indication: RHEUMATOID ARTHRITIS
     Dosage: 50 MG MONTHY
     Route: 058
     Dates: start: 2010
  10. TOPAMAX [Concomitant]
     Indication: PRODUCT USED FOR UNKNOWN INDICATION
     Dosage: 50 MG, UNK
  11. LEFLUNOMIDE [Concomitant]
     Indication: PRODUCT USED FOR UNKNOWN INDICATION
  12. XANAX [Concomitant]
     Indication: PRODUCT USED FOR UNKNOWN INDICATION
     Dosage: 0.5 MG, UNK

REACTIONS (20)
  - Drug withdrawal syndrome [Recovered/Resolved]
  - Blood pressure increased [Recovered/Resolved]
  - Therapeutic response decreased [Recovered/Resolved]
  - Withdrawal syndrome [Unknown]
  - Insomnia [Recovered/Resolved]
  - Decreased appetite [Recovered/Resolved]
  - Heart rate increased [Recovered/Resolved]
  - Hyperhidrosis [Recovered/Resolved]
  - Blood pressure increased [Unknown]
  - Nausea [Not Recovered/Not Resolved]
  - Diarrhoea [Not Recovered/Not Resolved]
  - Anxiety [Not Recovered/Not Resolved]
  - Restlessness [Not Recovered/Not Resolved]
  - Pain [Recovered/Resolved]
  - Thirst [Recovered/Resolved]
  - Pollakiuria [Recovered/Resolved]
  - Drug ineffective [Recovered/Resolved]
  - Palpitations [Recovered/Resolved]
  - Dry mouth [Recovered/Resolved]
  - Functional gastrointestinal disorder [Recovered/Resolved]
